FAERS Safety Report 19460270 (Version 2)
Quarter: 2021Q3

REPORT INFORMATION
  Report Type: Report from Study
  Country: JP (occurrence: JP)
  Receive Date: 20210625
  Receipt Date: 20210902
  Transmission Date: 20211014
  Serious: Yes (Hospitalization, Other)
  Sender: FDA-Public Use
  Company Number: JP-AMGEN-JPNCT2021097079

PATIENT
  Age: 57 Year
  Sex: Female

DRUGS (29)
  1. CYLOCIDE [Suspect]
     Active Substance: CYTARABINE
     Indication: PRODUCT USED FOR UNKNOWN INDICATION
     Dosage: 28 MILLIGRAM
     Route: 065
     Dates: start: 20170106, end: 20170114
  2. CYLOCIDE [Suspect]
     Active Substance: CYTARABINE
     Dosage: 28 MILLIGRAM
     Route: 065
     Dates: start: 20170711, end: 20170720
  3. NEUTROGIN [Concomitant]
     Active Substance: LENOGRASTIM
     Dosage: 180 MILLIGRAM
     Route: 065
     Dates: start: 20170302
  4. ACLACINON [Suspect]
     Active Substance: ACLARUBICIN HYDROCHLORIDE
     Indication: PRODUCT USED FOR UNKNOWN INDICATION
     Dosage: 20 MILLIGRAM
     Route: 065
     Dates: start: 20170106, end: 20170107
  5. ACLACINON [Suspect]
     Active Substance: ACLARUBICIN HYDROCHLORIDE
     Dosage: 20 MILLIGRAM
     Route: 065
     Dates: start: 20170302, end: 20170305
  6. CYLOCIDE [Suspect]
     Active Substance: CYTARABINE
     Dosage: 28 MILLIGRAM
     Route: 065
     Dates: start: 20170609, end: 20170622
  7. MEROPENEM. [Concomitant]
     Active Substance: MEROPENEM
     Dosage: 2 GRAM
     Route: 065
     Dates: start: 20161230, end: 20170112
  8. VIDAZA [Suspect]
     Active Substance: AZACITIDINE
     Dosage: 100 MILLIGRAM
     Route: 065
     Dates: start: 20170204, end: 20170210
  9. CYLOCIDE [Suspect]
     Active Substance: CYTARABINE
     Dosage: 28 MILLIGRAM
     Route: 065
     Dates: start: 20170427, end: 20170510
  10. SENNOSIDE A+B CALCIUM [Concomitant]
     Active Substance: SENNOSIDES A AND B
     Dosage: 24 MILLIGRAM
     Route: 048
     Dates: start: 20161126
  11. NEUTROGIN [Concomitant]
     Active Substance: LENOGRASTIM
     Dosage: 100 MILLIGRAM
     Route: 065
     Dates: start: 20170106, end: 20170114
  12. GRANISETRON [Concomitant]
     Active Substance: GRANISETRON
     Dosage: 3 MILLIGRAM
     Route: 065
     Dates: start: 20161124, end: 20161130
  13. GRANISETRON [Concomitant]
     Active Substance: GRANISETRON
     Dosage: 3 MILLIGRAM
     Route: 065
     Dates: start: 20170106, end: 20170107
  14. CICLOSPORIN [Concomitant]
     Active Substance: CYCLOSPORINE
     Indication: MYELODYSPLASTIC SYNDROME
     Dosage: 200 MILLIGRAM
     Route: 048
     Dates: start: 20130430, end: 20161208
  15. DARBEPOETIN ALFA [Suspect]
     Active Substance: DARBEPOETIN ALFA
     Indication: MYELODYSPLASTIC SYNDROME
     Dosage: 240 MICROGRAM, QWK
     Route: 058
     Dates: start: 20150312, end: 20150430
  16. DARBEPOETIN ALFA [Suspect]
     Active Substance: DARBEPOETIN ALFA
     Dosage: 240 MICROGRAM, QWK
     Route: 058
     Dates: start: 20150604, end: 20161117
  17. MYCOSYST [Concomitant]
     Active Substance: FLUCONAZOLE
     Dosage: 100 MILLIGRAM
     Route: 048
     Dates: start: 20130430
  18. MAGMITT [Concomitant]
     Active Substance: MAGNESIUM OXIDE
     Dosage: 1500 MILLIGRAM
     Route: 048
     Dates: start: 20161126
  19. LOBU [Concomitant]
     Active Substance: LOBUCAVIR
     Dosage: 60?120 MG
     Route: 048
     Dates: start: 20161230, end: 20170111
  20. LOBU [Concomitant]
     Active Substance: LOBUCAVIR
     Dosage: 60?120 MG
     Route: 048
     Dates: start: 20170310
  21. GRANISETRON [Concomitant]
     Active Substance: GRANISETRON
     Dosage: 3 MILLIGRAM
     Route: 065
     Dates: start: 20170204, end: 20170210
  22. GRANISETRON [Concomitant]
     Active Substance: GRANISETRON
     Dosage: 3 MILLIGRAM
     Route: 065
     Dates: start: 20170302, end: 20170305
  23. ZOLPIDEM TARTRATE. [Concomitant]
     Active Substance: ZOLPIDEM TARTRATE
     Dosage: 5 MILLIGRAM
     Route: 048
     Dates: start: 20161205
  24. VIDAZA [Suspect]
     Active Substance: AZACITIDINE
     Indication: MYELODYSPLASTIC SYNDROME
     Dosage: 100 MILLIGRAM
     Route: 065
     Dates: start: 20161124, end: 20161130
  25. EXJADE [Concomitant]
     Active Substance: DEFERASIROX
     Indication: MYELODYSPLASTIC SYNDROME
     Dosage: 500 MILLIGRAM
     Route: 048
     Dates: start: 20130305
  26. FINIBAX [Concomitant]
     Active Substance: DORIPENEM MONOHYDRATE
     Dosage: 0.5 GRAM
     Route: 065
     Dates: start: 20170113, end: 20170118
  27. CYLOCIDE [Suspect]
     Active Substance: CYTARABINE
     Dosage: 28 MILLIGRAM
     Route: 065
     Dates: start: 20170302
  28. MERCAZOLE [THIAMAZOLE] [Concomitant]
     Active Substance: METHIMAZOLE
     Indication: HYPERTHYROIDISM
     Dosage: 10 MILLIGRAM
     Route: 048
     Dates: start: 20121211
  29. BACTRAMIN [Concomitant]
     Active Substance: SULFAMETHOXAZOLE\TRIMETHOPRIM
     Dosage: 1 DOSAGE FORM
     Route: 048
     Dates: start: 20130430

REACTIONS (13)
  - Platelet count decreased [Recovered/Resolved]
  - White blood cell count decreased [Recovered/Resolved]
  - Platelet count decreased [Recovered/Resolved]
  - Pyrexia [Recovering/Resolving]
  - Febrile neutropenia [Recovered/Resolved]
  - C-reactive protein increased [Recovering/Resolving]
  - C-reactive protein increased [Recovering/Resolving]
  - Febrile neutropenia [Recovering/Resolving]
  - Insomnia [Recovering/Resolving]
  - Disease progression [Not Recovered/Not Resolved]
  - Transformation to acute myeloid leukaemia [Not Recovered/Not Resolved]
  - Constipation [Recovering/Resolving]
  - Pyrexia [Recovering/Resolving]

NARRATIVE: CASE EVENT DATE: 20160915
